FAERS Safety Report 6237038-8 (Version None)
Quarter: 2009Q2

REPORT INFORMATION
  Report Type: 
  Country: None (occurrence: None)
  Receive Date: 20090619
  Receipt Date: 20090616
  Transmission Date: 20091009
  Serious: Yes (Death, Other)
  Sender: FDA-Public Use
  Company Number: US-CELGENEUS-163-21880-08101845

PATIENT
  Sex: Male

DRUGS (2)
  1. REVLIMID [Suspect]
     Indication: MULTIPLE MYELOMA
     Route: 048
     Dates: start: 20080923, end: 20081001
  2. REVLIMID [Suspect]
     Route: 048
     Dates: start: 20081110

REACTIONS (9)
  - ASTHENIA [None]
  - BONE PAIN [None]
  - CARDIAC FAILURE CONGESTIVE [None]
  - CEREBROVASCULAR ACCIDENT [None]
  - CHILLS [None]
  - COMMUNICATION DISORDER [None]
  - HIP FRACTURE [None]
  - MULTI-ORGAN FAILURE [None]
  - MULTIPLE MYELOMA [None]
